FAERS Safety Report 5981238-9 (Version None)
Quarter: 2008Q4

REPORT INFORMATION
  Report Type: 
  Country: None (occurrence: None)
  Receive Date: 20081202
  Receipt Date: 20081202
  Transmission Date: 20090506
  Serious: Yes (Hospitalization, Other)
  Sender: FDA-Public Use
  Company Number: None

PATIENT
  Sex: Male
  Weight: 3.94 kg

DRUGS (1)
  1. ERYTHROMYCIN [Suspect]
     Indication: CONJUNCTIVITIS CHLAMYDIAL
     Dosage: 50MG QID PO
     Route: 048
     Dates: start: 20081115, end: 20081125

REACTIONS (3)
  - DEHYDRATION [None]
  - PYLORIC STENOSIS [None]
  - VOMITING [None]
